FAERS Safety Report 5393820-0 (Version None)
Quarter: 2007Q3

REPORT INFORMATION
  Report Type: 
  Country: None (occurrence: None)
  Receive Date: 20070719
  Receipt Date: 20070719
  Transmission Date: 20080115
  Serious: Yes (Other)
  Sender: FDA-Public Use
  Company Number: None

PATIENT
  Age: 41 Year
  Sex: Female
  Weight: 90.7194 kg

DRUGS (2)
  1. SERTRALINE [Suspect]
     Indication: DEPRESSION
     Dosage: 150 MG ONCE DAILY PO
     Route: 048
     Dates: start: 20070113, end: 20070624
  2. SERTRALINE [Suspect]
     Indication: DEPRESSION
     Dosage: 150 ONCE DAILY PO
     Route: 048
     Dates: start: 20070625, end: 20070718

REACTIONS (9)
  - DEPRESSION [None]
  - DRUG INTOLERANCE [None]
  - HEADACHE [None]
  - HEART RATE INCREASED [None]
  - INITIAL INSOMNIA [None]
  - MIDDLE INSOMNIA [None]
  - MOOD SWINGS [None]
  - PHARMACEUTICAL PRODUCT COMPLAINT [None]
  - THERAPEUTIC RESPONSE UNEXPECTED WITH DRUG SUBSTITUTION [None]
